FAERS Safety Report 6221638-5 (Version None)
Quarter: 2009Q2

REPORT INFORMATION
  Report Type: 
  Country: None (occurrence: None)
  Receive Date: 20090610
  Receipt Date: 20090603
  Transmission Date: 20091009
  Serious: Yes (Other)
  Sender: FDA-Public Use
  Company Number: NZ-ABBOTT-09P-118-0577223-00

PATIENT
  Sex: Female

DRUGS (1)
  1. HUMIRA [Suspect]
     Indication: ANKYLOSING SPONDYLITIS
     Dosage: PATIENT ONLY HAD ONE DOSE
     Dates: start: 20090525, end: 20090603

REACTIONS (4)
  - RASH PRURITIC [None]
  - THROAT IRRITATION [None]
  - THROAT TIGHTNESS [None]
  - WHEEZING [None]
